FAERS Safety Report 10678526 (Version 1)
Quarter: 2014Q4

REPORT INFORMATION
  Report Type: Spontaneous
  Country: US (occurrence: None)
  Receive Date: 20141224
  Receipt Date: 20141224
  Transmission Date: 20150529
  Serious: Yes (Life-Threatening)
  Sender: FDA-Public Use
  Company Number: None

PATIENT
  Age: 44 Year
  Sex: Female
  Weight: 56.7 kg

DRUGS (1)
  1. GADOLINIUM [Suspect]
     Active Substance: GADOLINIUM
     Indication: NUCLEAR MAGNETIC RESONANCE IMAGING
     Dosage: BEFORE MRI INTO A VEIN
     Route: 042
     Dates: start: 20121004, end: 20121004

REACTIONS (9)
  - Contrast media allergy [None]
  - Dyspnoea [None]
  - Chest pain [None]
  - Nausea [None]
  - Laryngeal oedema [None]
  - Tachycardia [None]
  - Tremor [None]
  - Anaphylactoid reaction [None]
  - Chest discomfort [None]

NARRATIVE: CASE EVENT DATE: 20121004
